FAERS Safety Report 8378159-3 (Version None)
Quarter: 2012Q2

REPORT INFORMATION
  Report Type: 
  Country: None (occurrence: None)
  Receive Date: 20120522
  Receipt Date: 20120517
  Transmission Date: 20120825
  Serious: No
  Sender: FDA-Public Use
  Company Number: US-PFIZER INC-2012120897

PATIENT
  Age: 58 Year
  Sex: Female
  Weight: 59.41 kg

DRUGS (8)
  1. CELEXA [Concomitant]
     Dosage: UNK
  2. GABAPENTIN [Suspect]
     Indication: FIBROMYALGIA
     Dosage: UNK
  3. PREMARIN [Concomitant]
     Dosage: UNK, DAILY
  4. LYRICA [Suspect]
     Indication: FIBROMYALGIA
     Dosage: 50 MG, 2X/DAY
  5. DOXEPIN HCL [Suspect]
     Indication: SLEEP DISORDER
     Dosage: 50 MG, DAILY AT NIGHT
  6. NEXIUM [Concomitant]
     Indication: GASTROOESOPHAGEAL REFLUX DISEASE
     Dosage: 50 MG, DAILY
  7. FLEXERIL [Concomitant]
     Dosage: UNK, 2X/DAY
  8. ULTRAM [Suspect]
     Indication: PAIN
     Dosage: UNK
     Dates: start: 20120501

REACTIONS (3)
  - DRUG INEFFECTIVE [None]
  - PAIN [None]
  - FIBROMYALGIA [None]
